FAERS Safety Report 15379274 (Version 1)
Quarter: 2018Q3

REPORT INFORMATION
  Report Type: Report from Study
  Country: US (occurrence: US)
  Receive Date: 20180913
  Receipt Date: 20180913
  Transmission Date: 20181010
  Serious: Yes (Hospitalization, Other)
  Sender: FDA-Public Use
  Company Number: US-SA-2017SA177618

PATIENT
  Age: 48 Year
  Sex: Female

DRUGS (2)
  1. IBUPROFEN. [Concomitant]
     Active Substance: IBUPROFEN
     Dosage: 200 MG,PRN
     Route: 065
     Dates: start: 2017
  2. LEMTRADA [Suspect]
     Active Substance: ALEMTUZUMAB
     Indication: MULTIPLE SCLEROSIS
     Dosage: 12 MG,QD
     Route: 041
     Dates: start: 20170912, end: 20170916

REACTIONS (14)
  - Hepatic enzyme increased [Recovered/Resolved]
  - Fatigue [Not Recovered/Not Resolved]
  - Hepatic function abnormal [Not Recovered/Not Resolved]
  - Pain [Not Recovered/Not Resolved]
  - Intestinal obstruction [Not Recovered/Not Resolved]
  - Weight increased [Recovering/Resolving]
  - Headache [Not Recovered/Not Resolved]
  - Hepatic cirrhosis [Not Recovered/Not Resolved]
  - Dry skin [Not Recovered/Not Resolved]
  - Pain [Recovering/Resolving]
  - Pain [Not Recovered/Not Resolved]
  - Nausea [Not Recovered/Not Resolved]
  - Arthropod sting [Not Recovered/Not Resolved]
  - Hyperkeratosis [Not Recovered/Not Resolved]

NARRATIVE: CASE EVENT DATE: 2017
